FAERS Safety Report 10559697 (Version 2)
Quarter: 2014Q4

REPORT INFORMATION
  Report Type: Spontaneous
  Country: US (occurrence: US)
  Receive Date: 20141103
  Receipt Date: 20141229
  Transmission Date: 20150529
  Serious: Yes (Other)
  Sender: FDA-Public Use
  Company Number: US-PFIZER INC-2014300771

PATIENT
  Age: 78 Year
  Sex: Female
  Weight: 55 kg

DRUGS (5)
  1. DIAZEPAM. [Concomitant]
     Active Substance: DIAZEPAM
     Dosage: 5 MG, 3X/DAY
  2. LEVOXYL [Concomitant]
     Active Substance: LEVOTHYROXINE SODIUM
     Indication: THYROID DISORDER
     Dosage: 112 UG, 1X/DAY
  3. XALATAN [Concomitant]
     Active Substance: LATANOPROST
     Dosage: 1 GTT, UNK, IN EACH EYE AT NIGHT
     Route: 047
  4. ZOLOFT [Suspect]
     Active Substance: SERTRALINE HYDROCHLORIDE
     Indication: PANIC ATTACK
     Dosage: UNK
  5. ZOLOFT [Suspect]
     Active Substance: SERTRALINE HYDROCHLORIDE
     Dosage: 150 MG, 1X/DAY
     Dates: end: 201404

REACTIONS (7)
  - Hypertension [Recovered/Resolved]
  - Headache [Recovered/Resolved]
  - Feeling abnormal [Recovered/Resolved]
  - Drug withdrawal syndrome [Recovered/Resolved]
  - Visual impairment [Recovered/Resolved]
  - Depression [Recovered/Resolved]
  - Insomnia [Recovered/Resolved]

NARRATIVE: CASE EVENT DATE: 201404
